FAERS Safety Report 15727879 (Version 1)
Quarter: 2018Q4

REPORT INFORMATION
  Report Type: Spontaneous
  Country: US (occurrence: US)
  Receive Date: 20181217
  Receipt Date: 20181217
  Transmission Date: 20190205
  Serious: No
  Sender: FDA-Public Use
  Company Number: US-PFIZER INC-2018512267

PATIENT

DRUGS (1)
  1. ADVIL [Suspect]
     Active Substance: IBUPROFEN
     Indication: SCIATICA
     Dosage: 1 DF, DAILY (ONE DAILY)

REACTIONS (2)
  - Intentional product misuse [Unknown]
  - Feeling cold [Unknown]
